FAERS Safety Report 8162778-3 (Version None)
Quarter: 2012Q1

REPORT INFORMATION
  Report Type: 
  Country: None (occurrence: None)
  Receive Date: 20120224
  Receipt Date: 20120216
  Transmission Date: 20120608
  Serious: Yes (Other)
  Sender: FDA-Public Use
  Company Number: KR-PFIZER INC-2012041488

PATIENT
  Sex: Male

DRUGS (1)
  1. TOVIAZ [Suspect]
     Indication: MICTURITION URGENCY
     Dosage: UNK
     Route: 048

REACTIONS (2)
  - XEROPHTHALMIA [None]
  - VISION BLURRED [None]
